FAERS Safety Report 13503129 (Version 2)
Quarter: 2017Q4

REPORT INFORMATION
  Report Type: Spontaneous
  Country: DE (occurrence: DE)
  Receive Date: 20170502
  Receipt Date: 20171030
  Transmission Date: 20180320
  Serious: Yes (Hospitalization, Other)
  Sender: FDA-Public Use
  Company Number: DE-SA-2017SA077425

PATIENT
  Age: 20 Year
  Sex: Female
  Weight: 52 kg

DRUGS (1)
  1. FERRLECIT [Suspect]
     Active Substance: SODIUM FERRIC GLUCONATE COMPLEX
     Route: 042
     Dates: start: 20170405

REACTIONS (10)
  - Swelling [Recovered/Resolved]
  - Oedema peripheral [Recovered/Resolved]
  - Abdominal pain upper [Recovered/Resolved]
  - Nausea [Recovered/Resolved]
  - Hyperaesthesia [Recovered/Resolved]
  - Paraesthesia [Recovered/Resolved]
  - Respiratory distress [Recovered/Resolved]
  - Anaphylactic reaction [Unknown]
  - Urticaria [Recovered/Resolved]
  - Vasospasm [Recovered/Resolved]

NARRATIVE: CASE EVENT DATE: 20170410
